FAERS Safety Report 5794352-8 (Version None)
Quarter: 2008Q2

REPORT INFORMATION
  Report Type: 
  Country: None (occurrence: None)
  Receive Date: 20080625
  Receipt Date: 20080610
  Transmission Date: 20081010
  Serious: No
  Sender: FDA-Public Use
  Company Number: SPV1-2008-00807

PATIENT
  Age: 13 Year
  Sex: Female
  Weight: 47.6 kg

DRUGS (3)
  1. VYVANSE [Suspect]
     Indication: ATTENTION DEFICIT/HYPERACTIVITY DISORDER
     Dosage: 30 MG, 1X/DAY:QD, ORAL
     Route: 048
     Dates: start: 20080318, end: 20080403
  2. VYVANSE [Suspect]
     Indication: ATTENTION DEFICIT/HYPERACTIVITY DISORDER
     Dosage: 30 MG, 1X/DAY:QD, ORAL
     Route: 048
     Dates: start: 20080406, end: 20080604
  3. ALBUTEROL [Suspect]
     Indication: ASTHMA
     Dosage: AS REQ'D RESPIRATORY
     Route: 055
     Dates: start: 20080331, end: 20080414

REACTIONS (6)
  - ANXIETY [None]
  - FALL [None]
  - OFF LABEL USE [None]
  - SYNCOPE [None]
  - UPPER RESPIRATORY TRACT INFECTION [None]
  - WHEEZING [None]
